FAERS Safety Report 11176164 (Version 1)
Quarter: 2015Q2

REPORT INFORMATION
  Report Type: Spontaneous
  Country: GR (occurrence: GR)
  Receive Date: 20150609
  Receipt Date: 20150609
  Transmission Date: 20150821
  Serious: Yes (Hospitalization)
  Sender: FDA-Public Use
  Company Number: PHHY2015GR066821

PATIENT
  Age: 36 Year
  Sex: Female

DRUGS (2)
  1. TOPIRAMATE. [Suspect]
     Active Substance: TOPIRAMATE
     Indication: MIGRAINE
     Dosage: 25 MG, QD
     Route: 065
  2. TOPIRAMATE. [Suspect]
     Active Substance: TOPIRAMATE
     Dosage: 100 MG, QD
     Route: 065

REACTIONS (8)
  - Choroidal effusion [Recovered/Resolved]
  - Mydriasis [Recovered/Resolved]
  - Photophobia [Recovering/Resolving]
  - Uveitis [Recovered/Resolved]
  - Conjunctival oedema [Recovered/Resolved]
  - Corneal oedema [Recovered/Resolved]
  - Angle closure glaucoma [Recovered/Resolved]
  - Vision blurred [Recovered/Resolved]
